FAERS Safety Report 24454502 (Version 2)
Quarter: 2024Q4

REPORT INFORMATION
  Report Type: Spontaneous
  Country: CN (occurrence: CN)
  Receive Date: 20241017
  Receipt Date: 20241018
  Transmission Date: 20250115
  Serious: No
  Sender: ROCHE
  Company Number: CN-ROCHE-3476026

PATIENT
  Age: 4 Year
  Sex: Male

DRUGS (11)
  1. RITUXIMAB [Suspect]
     Active Substance: RITUXIMAB
     Indication: Lymphocytic leukaemia
     Route: 042
  2. RITUXIMAB [Suspect]
     Active Substance: RITUXIMAB
     Route: 042
     Dates: start: 20220328
  3. RITUXIMAB [Suspect]
     Active Substance: RITUXIMAB
     Route: 042
     Dates: start: 20220419
  4. PREDNISONE [Suspect]
     Active Substance: PREDNISONE
     Indication: Lymphocytic leukaemia
     Dosage: 50-60 MG/M2/DAY
     Route: 065
     Dates: start: 20211225
  5. BLINATUMOMAB [Suspect]
     Active Substance: BLINATUMOMAB
     Indication: Lymphocytic leukaemia
     Dosage: AN INITIAL DOSE WAS ESCALATED AFTER SIX DAYS
     Route: 065
     Dates: start: 20220202
  6. BLINATUMOMAB [Suspect]
     Active Substance: BLINATUMOMAB
     Route: 065
     Dates: start: 20220216
  7. BLINATUMOMAB [Suspect]
     Active Substance: BLINATUMOMAB
     Route: 065
     Dates: start: 20220222
  8. BLINATUMOMAB [Suspect]
     Active Substance: BLINATUMOMAB
     Route: 065
     Dates: start: 20220323
  9. BLINATUMOMAB [Suspect]
     Active Substance: BLINATUMOMAB
     Route: 065
     Dates: start: 20220414
  10. DEXAMETHASONE [Suspect]
     Active Substance: DEXAMETHASONE
     Indication: Lymphocytic leukaemia
     Route: 065
  11. DECITABINE [Concomitant]
     Active Substance: DECITABINE

REACTIONS (3)
  - Upper respiratory tract infection [Unknown]
  - Febrile infection [Unknown]
  - Cystitis viral [Unknown]
